FAERS Safety Report 8541686 (Version 3)
Quarter: 2012Q4

REPORT INFORMATION
  Report Type: 
  Country: GR (occurrence: GR)
  Receive Date: 20120502
  Receipt Date: 20121120
  Transmission Date: 20130627
  Serious: Yes (Death)
  Sender: FDA-Public Use
  Company Number: GR-PFIZER INC-2012104632

PATIENT
  Age: 50 Year
  Sex: Male

DRUGS (8)
  1. DOXORUBICIN HCL [Suspect]
     Indication: HODGKIN^S LYMPHOMA
  2. ETOPOSIDE [Suspect]
     Indication: HODGKIN^S LYMPHOMA
  3. MESNA [Suspect]
     Indication: HODGKIN^S LYMPHOMA
  4. IFOSFAMIDE [Suspect]
     Indication: HODGKIN^S LYMPHOMA
  5. MITOXANTRONE HYDROCHLORIDE [Suspect]
  6. BLEOMYCIN [Suspect]
     Indication: HODGKIN^S LYMPHOMA
  7. VINBLASTINE [Suspect]
     Indication: HODGKIN^S LYMPHOMA
  8. DACARBAZINE [Suspect]
     Indication: HODGKIN^S LYMPHOMA

REACTIONS (2)
  - Multi-organ failure [Fatal]
  - Toxicity to various agents [Fatal]
